FAERS Safety Report 24367443 (Version 2)
Quarter: 2024Q3

REPORT INFORMATION
  Report Type: Spontaneous
  Country: US (occurrence: US)
  Receive Date: 20240926
  Receipt Date: 20240930
  Transmission Date: 20241016
  Serious: Yes (Hospitalization, Other)
  Sender: PFIZER
  Company Number: US-PFIZER INC-PV202400124621

PATIENT
  Age: 15 Year
  Sex: Female

DRUGS (7)
  1. MEDROL [Suspect]
     Active Substance: METHYLPREDNISOLONE
     Indication: Still^s disease
     Dosage: UNK
     Route: 065
  2. JAKAFI [Suspect]
     Active Substance: RUXOLITINIB
     Indication: Still^s disease
     Dosage: 25 TWO TIMES A DAY AND UP TITRATING DOSES
     Route: 065
     Dates: start: 202309
  3. JAKAFI [Suspect]
     Active Substance: RUXOLITINIB
     Dosage: 25  TWO TIMES A DAY
     Route: 065
     Dates: start: 202408
  4. PREDNISONE [Suspect]
     Active Substance: PREDNISONE
     Indication: Still^s disease
     Dosage: UNK
     Route: 065
  5. VOCLOSPORIN [Suspect]
     Active Substance: VOCLOSPORIN
     Indication: Still^s disease
     Dosage: UNK
     Route: 065
     Dates: start: 202310
  6. KEVZARA [Concomitant]
     Active Substance: SARILUMAB
     Dosage: UNK
     Dates: start: 202305, end: 202309
  7. VORICONAZOLE [Concomitant]
     Active Substance: VORICONAZOLE
     Dosage: UNK

REACTIONS (14)
  - Haemophagocytic lymphohistiocytosis [Unknown]
  - Still^s disease [Unknown]
  - Condition aggravated [Unknown]
  - Hypertransaminasaemia [Unknown]
  - Hallucination [Unknown]
  - Drug hypersensitivity [Unknown]
  - Nausea [Unknown]
  - Vomiting [Unknown]
  - Diarrhoea [Unknown]
  - Antiphospholipid antibodies positive [Unknown]
  - Blood immunoglobulin G increased [Unknown]
  - Blood immunoglobulin E increased [Unknown]
  - White blood cell count increased [Unknown]
  - Blood immunoglobulin M increased [Unknown]

NARRATIVE: CASE EVENT DATE: 20230901
